FAERS Safety Report 11492994 (Version 1)
Quarter: 2015Q3

REPORT INFORMATION
  Report Type: Spontaneous
  Country: US (occurrence: None)
  Receive Date: 20150910
  Receipt Date: 20150910
  Transmission Date: 20151125
  Serious: No
  Sender: FDA-Public Use
  Company Number: None

PATIENT
  Age: 17 Year
  Sex: Male

DRUGS (1)
  1. ILARIS [Suspect]
     Active Substance: CANAKINUMAB
     Indication: CHRONIC INFANTILE NEUROLOGICAL CUTANEOUS AND ARTICULAR SYNDROME
     Dosage: EVERY 28 DAYS
     Route: 058
     Dates: start: 201307

REACTIONS (6)
  - Erythema [None]
  - Rash [None]
  - Feeling hot [None]
  - Hyperaesthesia [None]
  - Tenderness [None]
  - Pruritus [None]

NARRATIVE: CASE EVENT DATE: 20150824
